FAERS Safety Report 12613841 (Version 9)
Quarter: 2017Q1

REPORT INFORMATION
  Report Type: Spontaneous
  Country: US (occurrence: US)
  Receive Date: 20160802
  Receipt Date: 20170314
  Transmission Date: 20170428
  Serious: No
  Sender: FDA-Public Use
  Company Number: US-PFIZER INC-2016348647

PATIENT
  Age: 70 Year
  Sex: Male
  Weight: 100 kg

DRUGS (10)
  1. SUTENT [Suspect]
     Active Substance: SUNITINIB MALATE
     Dosage: 50 MG, CYCLIC (1 DAILY FOR 2 WEEKS Q 21 DAYS)
     Route: 048
     Dates: start: 20160617
  2. SUTENT [Suspect]
     Active Substance: SUNITINIB MALATE
     Dosage: 50 MG, CYCLIC (DAY 1-14 Q21 DAYS)
     Route: 048
     Dates: start: 20160623, end: 201701
  3. SUTENT [Suspect]
     Active Substance: SUNITINIB MALATE
     Dosage: 50 MG, CYCLIC (DAILY 14 DAYS, 7 DAYS OFF)
     Route: 048
     Dates: start: 20160815
  4. NORCO [Concomitant]
     Active Substance: ACETAMINOPHEN\HYDROCODONE BITARTRATE
     Indication: CANCER PAIN
     Dosage: UNK, AS NEEDED
     Dates: start: 20161212
  5. SUTENT [Suspect]
     Active Substance: SUNITINIB MALATE
     Dosage: 50 MG, CYCLIC [DAYS 1-14 Q21 DAYS]
     Route: 048
     Dates: start: 20160623
  6. SUTENT [Suspect]
     Active Substance: SUNITINIB MALATE
     Dosage: 50 MG, CYCLIC (1 PO QD X 2 WEEKS, 1 WEEK OFF)
     Route: 048
     Dates: start: 20160617
  7. SUTENT [Suspect]
     Active Substance: SUNITINIB MALATE
     Indication: RENAL CANCER METASTATIC
     Dosage: UNK
     Route: 048
     Dates: start: 20160615
  8. SUTENT [Suspect]
     Active Substance: SUNITINIB MALATE
     Dosage: 20 MG, CYCLIC (DAILY 2 WEEKS ON, 1 WEEK OFF)
     Route: 048
     Dates: start: 20160620
  9. SUTENT [Suspect]
     Active Substance: SUNITINIB MALATE
     Dosage: 50 MG, CYCLIC (14 DAYS, 7 DAYS) (ILLEGIBLE)
     Route: 048
     Dates: start: 20160817
  10. SUTENT [Suspect]
     Active Substance: SUNITINIB MALATE
     Dosage: 37.5 MG, CYCLIC(D1-14 Q 21 DAYS)
     Route: 048
     Dates: start: 20170216

REACTIONS (18)
  - Oral discomfort [Unknown]
  - Diarrhoea [Unknown]
  - Toothache [Unknown]
  - Dysgeusia [Unknown]
  - Dyspepsia [Not Recovered/Not Resolved]
  - Skin exfoliation [Not Recovered/Not Resolved]
  - Skin fissures [Unknown]
  - Neuropathy peripheral [Unknown]
  - Oral pain [Unknown]
  - Pain in extremity [Not Recovered/Not Resolved]
  - Blood pressure increased [Recovered/Resolved]
  - Abdominal pain upper [Unknown]
  - White blood cell count decreased [Recovering/Resolving]
  - Condition aggravated [Not Recovered/Not Resolved]
  - Mucosal inflammation [Recovered/Resolved]
  - Muscle spasms [Unknown]
  - Activities of daily living impaired [Unknown]
  - Palmar-plantar erythrodysaesthesia syndrome [Recovering/Resolving]

NARRATIVE: CASE EVENT DATE: 2016
